FAERS Safety Report 8171869-2 (Version None)
Quarter: 2012Q1

REPORT INFORMATION
  Report Type: 
  Country: None (occurrence: None)
  Receive Date: 20120228
  Receipt Date: 20120222
  Transmission Date: 20120608
  Serious: Yes (Hospitalization)
  Sender: FDA-Public Use
  Company Number: AU-B.I. PHARMACEUTICALS,INC./RIDGEFIELD-2012-AU-00280AU

PATIENT
  Sex: Male
  Weight: 85 kg

DRUGS (3)
  1. PRADAXA [Suspect]
     Indication: CEREBROVASCULAR ACCIDENT PROPHYLAXIS
     Dosage: 300 MG
     Dates: start: 20110709
  2. PRADAXA [Suspect]
     Indication: ATRIAL FIBRILLATION
  3. SOTALOL HCL [Concomitant]
     Dosage: 160 MG
     Dates: start: 20110601, end: 20120216

REACTIONS (2)
  - URINARY TRACT INFECTION [None]
  - BLOOD CREATININE INCREASED [None]
